FAERS Safety Report 8327373 (Version 2)
Quarter: 2012Q4

REPORT INFORMATION
  Report Type: 
  Country: US (occurrence: US)
  Receive Date: 20120109
  Receipt Date: 20121010
  Transmission Date: 20130627
  Serious: Yes (Other)
  Sender: FDA-Public Use
  Company Number: US-US-EMD SERONO, INC.-7104908

PATIENT
  Sex: Female

DRUGS (2)
  1. REBIF [Suspect]
     Indication: PRODUCT USED FOR UNKNOWN INDICATION
     Route: 058
     Dates: start: 20061116
  2. PREDNISONE [Suspect]
     Indication: RESPIRATORY FAILURE
     Dates: start: 2007

REACTIONS (6)
  - Otosclerosis [Unknown]
  - Ataxia [Unknown]
  - Constipation [Unknown]
  - Abdominal discomfort [Not Recovered/Not Resolved]
  - Thyroid disorder [Unknown]
  - Fatigue [Not Recovered/Not Resolved]
